FAERS Safety Report 14483945 (Version 2)
Quarter: 2019Q4

REPORT INFORMATION
  Report Type: Report from Study
  Country: US (occurrence: US)
  Receive Date: 20180205
  Receipt Date: 20191205
  Transmission Date: 20200122
  Serious: Yes (Other)
  Sender: FDA-Public Use
  Company Number: US-TEVA-2018-US-855139

PATIENT
  Sex: Male

DRUGS (1)
  1. AUSTEDO [Suspect]
     Active Substance: DEUTETRABENAZINE
     Dosage: 48 MILLIGRAM DAILY;
     Route: 065
     Dates: start: 20170802

REACTIONS (5)
  - Head injury [Recovering/Resolving]
  - Sedation [Recovering/Resolving]
  - Dehydration [Recovering/Resolving]
  - Fall [Recovering/Resolving]
  - Somnolence [Recovering/Resolving]
